FAERS Safety Report 15311504 (Version 5)
Quarter: 2019Q1

REPORT INFORMATION
  Report Type: Spontaneous
  Country: US (occurrence: US)
  Receive Date: 20180823
  Receipt Date: 20190304
  Transmission Date: 20190417
  Serious: Yes (Hospitalization, Other)
  Sender: FDA-Public Use
  Company Number: US-PFIZER INC-2018335507

PATIENT
  Age: 35 Year
  Sex: Male

DRUGS (15)
  1. FERROUS GLUCONATE [Concomitant]
     Active Substance: FERROUS GLUCONATE
     Dosage: 325 MG, 1X/DAY(1, AT MORNING 8 AM)
  2. DILANTIN [Suspect]
     Active Substance: PHENYTOIN
     Indication: FOCAL DYSCOGNITIVE SEIZURES
     Dosage: 7 DF, UNK (100 MGS; 7 TABLETS)
     Dates: start: 1981, end: 1996
  3. CLONAZEPAM. [Concomitant]
     Active Substance: CLONAZEPAM
     Dosage: 0.5 MG, (05 TAKEN WITH LAMICTAL, 1 AT 9 PM)
  4. DILANTIN [Suspect]
     Active Substance: PHENYTOIN
     Dosage: 700 MG, 1X/DAY
     Dates: start: 1981
  5. LAMICTAL [Suspect]
     Active Substance: LAMOTRIGINE
     Dosage: 550 MG DAILY(200 MG AT 4 AM AND 350 MG AT 5 PM)
  6. CLONAZEPAM. [Concomitant]
     Active Substance: CLONAZEPAM
     Indication: GENERALISED TONIC-CLONIC SEIZURE
     Dosage: 5 MG, 3X/DAY
     Dates: start: 2009
  7. TYLENOL [Concomitant]
     Active Substance: ACETAMINOPHEN
     Dosage: UNK, AS NEEDED AS NEEDED (BED TIMES FOR 2 WEEKS)
  8. CRANBERRY. [Concomitant]
     Active Substance: CRANBERRY
     Dosage: 500 MG, 1X/DAY (500MG 1, AT MORNING 8:00 AM)
  9. LAMICTAL [Suspect]
     Active Substance: LAMOTRIGINE
     Dosage: 550 MG, 1X/DAY (QD)
  10. LAMICTAL [Suspect]
     Active Substance: LAMOTRIGINE
     Dosage: 900 MG, UNK
  11. LORATADINE. [Concomitant]
     Active Substance: LORATADINE
     Dosage: 10 MG, 1X/DAY(1 AT MORNINGS 8 AM)
  12. LAMICTAL [Suspect]
     Active Substance: LAMOTRIGINE
     Dosage: 550 MG, DAILY (CURRENTLY TAKING 200 MG AT 6 AM AND TAKING 350 MG AT 6 PM.))
  13. SAW PALMETTO COMPLEX [Concomitant]
     Dosage: 450 MG, 1X/DAY(1, AT MORNING 8 AM)
  14. LAMICTAL [Suspect]
     Active Substance: LAMOTRIGINE
     Indication: FOCAL DYSCOGNITIVE SEIZURES
     Dosage: 100 MG, UNK
     Dates: start: 1996
  15. LAMICTAL [Suspect]
     Active Substance: LAMOTRIGINE
     Dosage: 350 MG, DAILY (100 MG; AM 200, PM )

REACTIONS (19)
  - Seizure [Unknown]
  - Movement disorder [Not Recovered/Not Resolved]
  - Insomnia [Unknown]
  - Amnesia [Recovered/Resolved]
  - Femur fracture [Unknown]
  - Upper limb fracture [Not Recovered/Not Resolved]
  - Arthropathy [Not Recovered/Not Resolved]
  - Drug ineffective [Unknown]
  - Rash [Unknown]
  - Feeling abnormal [Unknown]
  - Weight decreased [Unknown]
  - Hepatic enzyme increased [Unknown]
  - Osteonecrosis [Not Recovered/Not Resolved]
  - Humerus fracture [Not Recovered/Not Resolved]
  - Brain injury [Unknown]
  - Fall [Not Recovered/Not Resolved]
  - Rotator cuff syndrome [Unknown]
  - Generalised tonic-clonic seizure [Not Recovered/Not Resolved]
  - Periarthritis [Not Recovered/Not Resolved]

NARRATIVE: CASE EVENT DATE: 199607
